FAERS Safety Report 14321830 (Version 1)
Quarter: 2017Q4

REPORT INFORMATION
  Report Type: Spontaneous
  Country: US (occurrence: US)
  Receive Date: 20171224
  Receipt Date: 20171224
  Transmission Date: 20180321
  Serious: No
  Sender: FDA-Public Use
  Company Number: US-AMGEN-USASP2017188721

PATIENT
  Age: 49 Year
  Sex: Female

DRUGS (2)
  1. ENBREL [Suspect]
     Active Substance: ETANERCEPT
     Indication: OSTEOARTHRITIS
  2. ENBREL [Suspect]
     Active Substance: ETANERCEPT
     Indication: PSORIATIC ARTHROPATHY
     Dosage: 50 MG, UNK
     Route: 065

REACTIONS (8)
  - Condition aggravated [Unknown]
  - Back pain [Unknown]
  - Off label use [Unknown]
  - Nausea [Unknown]
  - Joint effusion [Unknown]
  - Stress [Unknown]
  - Concussion [Unknown]
  - Neck pain [Unknown]

NARRATIVE: CASE EVENT DATE: 201712
